FAERS Safety Report 5392843-5 (Version None)
Quarter: 2007Q3

REPORT INFORMATION
  Report Type: 
  Country: None (occurrence: None)
  Receive Date: 20070718
  Receipt Date: 20070702
  Transmission Date: 20080115
  Serious: Yes (Death, Life-Threatening)
  Sender: FDA-Public Use
  Company Number: ENC200700071

PATIENT
  Age: 53 Year
  Sex: Male

DRUGS (10)
  1. ARGATROBAN [Suspect]
     Indication: HEPARIN-INDUCED THROMBOCYTOPENIA
     Dosage: SEE IMAGE
     Route: 042
     Dates: start: 20050831, end: 20050901
  2. HEPARIN [Concomitant]
  3. ACYCLOVIR [Concomitant]
  4. CAPTOPRIL [Concomitant]
  5. VIAGRA [Concomitant]
  6. DIFLUCAN [Concomitant]
  7. ERYTHROMYCIN [Concomitant]
  8. VANCOMYCIN [Concomitant]
  9. RIFAMPICIN [Concomitant]
  10. BERODUAL (FENOTEROL HYDROBROMIDE, IPRATROPIUM BROMIDE) [Concomitant]

REACTIONS (7)
  - ACTIVATED PARTIAL THROMBOPLASTIN TIME PROLONGED [None]
  - ACTIVATED PARTIAL THROMBOPLASTIN TIME SHORTENED [None]
  - ASPARTATE AMINOTRANSFERASE INCREASED [None]
  - BLOOD BILIRUBIN INCREASED [None]
  - COAGULATION TIME PROLONGED [None]
  - HAEMORRHAGE [None]
  - SEPTIC SHOCK [None]
